FAERS Safety Report 15837867 (Version 1)
Quarter: 2019Q1

REPORT INFORMATION
  Report Type: Spontaneous
  Country: US (occurrence: US)
  Receive Date: 20190117
  Receipt Date: 20190117
  Transmission Date: 20190417
  Serious: Yes (Life-Threatening, Disabling, Other)
  Sender: FDA-Public Use
  Company Number: None

PATIENT
  Age: 49 Year
  Sex: Female
  Weight: 74.25 kg

DRUGS (2)
  1. CYCLOBENZAPRINE. [Concomitant]
     Active Substance: CYCLOBENZAPRINE
  2. CYMBALTA [Suspect]
     Active Substance: DULOXETINE HYDROCHLORIDE
     Indication: MUSCULOSKELETAL PAIN
     Dosage: ?          QUANTITY:1 CAPSULE(S);?
     Route: 048
     Dates: start: 20180605, end: 20190109

REACTIONS (21)
  - Confusional state [None]
  - Suicidal ideation [None]
  - Visual impairment [None]
  - Withdrawal syndrome [None]
  - Crying [None]
  - Fear of death [None]
  - Dry mouth [None]
  - Insomnia [None]
  - Myalgia [None]
  - Cough [None]
  - Headache [None]
  - Vision blurred [None]
  - Facial pain [None]
  - Speech disorder developmental [None]
  - Nausea [None]
  - Head discomfort [None]
  - Weight increased [None]
  - Negative thoughts [None]
  - Feeling abnormal [None]
  - Dizziness [None]
  - Thirst [None]

NARRATIVE: CASE EVENT DATE: 20190109
